FAERS Safety Report 5098988-1 (Version None)
Quarter: 2006Q3

REPORT INFORMATION
  Report Type: 
  Country: None (occurrence: None)
  Receive Date: 20060731
  Receipt Date: 20050902
  Transmission Date: 20061208
  Serious: Yes (Hospitalization)
  Sender: FDA-Public Use
  Company Number: 217450

PATIENT
  Age: 54 Year
  Sex: Female

DRUGS (3)
  1. RITUXAN [Suspect]
     Indication: LYMPHOMA
     Dosage: 1/MONTH
  2. COUMADIN [Concomitant]
  3. VENOFER [Concomitant]

REACTIONS (1)
  - LUNG INFILTRATION [None]
